FAERS Safety Report 16796427 (Version 2)
Quarter: 2020Q2

REPORT INFORMATION
  Report Type: Spontaneous
  Country: US (occurrence: US)
  Receive Date: 20190911
  Receipt Date: 20200618
  Transmission Date: 20200713
  Serious: No
  Sender: FDA-Public Use
  Company Number: US-SA-2019SA251849

PATIENT

DRUGS (1)
  1. DUPIXENT [Suspect]
     Active Substance: DUPILUMAB
     Indication: ASTHMA
     Dosage: 300 MG, QOW
     Route: 058
     Dates: start: 20190731

REACTIONS (4)
  - Pain in extremity [Unknown]
  - Musculoskeletal stiffness [Unknown]
  - Dyspnoea [Unknown]
  - Product use issue [Unknown]

NARRATIVE: CASE EVENT DATE: 20190731
